FAERS Safety Report 8080419-0 (Version None)
Quarter: 2012Q1

REPORT INFORMATION
  Report Type: 
  Country: None (occurrence: None)
  Receive Date: 20120130
  Receipt Date: 20120117
  Transmission Date: 20120608
  Serious: Yes (Hospitalization)
  Sender: FDA-Public Use
  Company Number: FR-VERTEX PHARMACEUTICALS INC.-000000000000000119

PATIENT
  Age: 53 Year
  Sex: Female

DRUGS (3)
  1. INCIVO (TELAPREVIR) [Suspect]
     Indication: HEPATITIS C
     Dosage: DOSAGE FORM: TABLET
     Route: 048
     Dates: start: 20111026
  2. PEGASYS [Concomitant]
     Indication: HEPATITIS C
     Dates: start: 20111026
  3. COPEGUS [Concomitant]
     Indication: HEPATITIS C
     Dates: end: 20111214

REACTIONS (1)
  - PANCREATITIS [None]
